FAERS Safety Report 14311590 (Version 2)
Quarter: 2019Q1

REPORT INFORMATION
  Report Type: Spontaneous
  Country: US (occurrence: US)
  Receive Date: 20171221
  Receipt Date: 20190128
  Transmission Date: 20190417
  Serious: Yes (Other)
  Sender: FDA-Public Use
  Company Number: US-ELI_LILLY_AND_COMPANY-US201712008608

PATIENT
  Age: 28 Year
  Sex: Female

DRUGS (4)
  1. DULOXETINE HYDROCHLORIDE. [Suspect]
     Active Substance: DULOXETINE HYDROCHLORIDE
     Indication: PAIN
     Dosage: 30 MG, DAILY
     Route: 065
     Dates: end: 20171120
  2. DULOXETINE HYDROCHLORIDE. [Suspect]
     Active Substance: DULOXETINE HYDROCHLORIDE
     Dosage: 60 MG, QOD
     Route: 065
  3. CYMBALTA [Suspect]
     Active Substance: DULOXETINE HYDROCHLORIDE
     Indication: PAIN
     Dosage: 30 MG, UNKNOWN
     Route: 065
     Dates: end: 20171120
  4. DULOXETINE HYDROCHLORIDE. [Suspect]
     Active Substance: DULOXETINE HYDROCHLORIDE
     Dosage: 60 MG, DAILY
     Route: 065
     Dates: start: 20170628

REACTIONS (24)
  - Mental impairment [Recovered/Resolved]
  - Insomnia [Recovered/Resolved]
  - Head discomfort [Recovered/Resolved]
  - Feeling abnormal [Recovered/Resolved]
  - Wrong technique in product usage process [Recovered/Resolved]
  - Hormone level abnormal [Recovered/Resolved]
  - Somnolence [Recovered/Resolved]
  - Paraesthesia [Recovering/Resolving]
  - Mood swings [Recovered/Resolved]
  - Hyperhidrosis [Recovered/Resolved]
  - Dyspepsia [Recovered/Resolved]
  - Weight increased [Recovered/Resolved]
  - Ear discomfort [Recovering/Resolving]
  - Depersonalisation/derealisation disorder [Recovered/Resolved]
  - Blood urine present [Recovered/Resolved]
  - Dysuria [Recovered/Resolved]
  - Anxiety [Recovering/Resolving]
  - Nervous system disorder [Recovered/Resolved]
  - Heart rate abnormal [Recovered/Resolved]
  - Sleep paralysis [Recovered/Resolved]
  - Sleep apnoea syndrome [Recovered/Resolved]
  - Hallucination [Recovered/Resolved]
  - Vomiting [Recovered/Resolved]
  - Drug withdrawal syndrome [Recovered/Resolved]

NARRATIVE: CASE EVENT DATE: 201711
